FAERS Safety Report 5181772-8 (Version None)
Quarter: 2006Q4

REPORT INFORMATION
  Report Type: 
  Country: None (occurrence: None)
  Receive Date: 20061220
  Receipt Date: 20060310
  Transmission Date: 20070319
  Serious: No
  Sender: FDA-Public Use
  Company Number: US-GLAXOSMITHKLINE-A0597038A

PATIENT
  Age: 65 Year
  Sex: Male

DRUGS (2)
  1. COMMIT [Suspect]
     Dosage: 4MG UNKNOWN
  2. COMMIT [Suspect]

REACTIONS (2)
  - RENAL FUNCTION TEST ABNORMAL [None]
  - URINE ODOUR ABNORMAL [None]
